FAERS Safety Report 10258198 (Version 2)
Quarter: 2015Q1

REPORT INFORMATION
  Report Type: Spontaneous
  Country: US (occurrence: None)
  Receive Date: 20140623
  Receipt Date: 20150327
  Transmission Date: 20150720
  Serious: Yes (Hospitalization)
  Sender: FDA-Public Use
  Company Number: 201406037

PATIENT
  Age: 54 Year
  Sex: Male
  Weight: 98.43 kg

DRUGS (9)
  1. EXFORGE (AMLODIPINE BESILATE, VALSARTAN) [Concomitant]
  2. PRAVASTATIN [Concomitant]
     Active Substance: PRAVASTATIN\PRAVASTATIN SODIUM
  3. TESTIM [Suspect]
     Active Substance: TESTOSTERONE
     Dates: start: 201202, end: 201208
  4. NAPROXEN. [Concomitant]
     Active Substance: NAPROXEN
  5. PACERONE (AMIODARONE HYDROCHLORIDE) [Concomitant]
  6. HYDROCODONE [Concomitant]
     Active Substance: HYDROCODONE
  7. HYZAAR (HYDROCHLOROTHIAZIDE, LOSARTAN POTASSIUM) [Concomitant]
  8. CARISOPRODOL. [Concomitant]
     Active Substance: CARISOPRODOL
  9. METOPROLOL [Concomitant]
     Active Substance: METOPROLOL

REACTIONS (8)
  - Coronary artery disease [None]
  - Injury [None]
  - Cerebrovascular accident [None]
  - Unevaluable event [None]
  - Diabetes mellitus [None]
  - Emotional disorder [None]
  - Myocardial infarction [None]
  - Economic problem [None]

NARRATIVE: CASE EVENT DATE: 201208
